FAERS Safety Report 10716552 (Version 1)
Quarter: 2015Q1

REPORT INFORMATION
  Report Type: Spontaneous
  Country: US (occurrence: US)
  Receive Date: 20150116
  Receipt Date: 20150116
  Transmission Date: 20150721
  Serious: No
  Sender: FDA-Public Use
  Company Number: US-BAYER-2015-005247

PATIENT
  Age: 53 Year
  Sex: Female

DRUGS (2)
  1. MIRENA [Suspect]
     Active Substance: LEVONORGESTREL
     Indication: UTERINE LEIOMYOMA
  2. MIRENA [Suspect]
     Active Substance: LEVONORGESTREL
     Indication: HOT FLUSH
     Dosage: 20 MCG/24HR, CONT
     Route: 015
     Dates: start: 2010

REACTIONS (6)
  - Procedural pain [None]
  - Abdominal pain [None]
  - Off label use [None]
  - Hot flush [Not Recovered/Not Resolved]
  - Device issue [None]
  - Cervix disorder [Recovering/Resolving]

NARRATIVE: CASE EVENT DATE: 20140109
